FAERS Safety Report 5336469-8 (Version None)
Quarter: 2007Q2

REPORT INFORMATION
  Report Type: 
  Country: None (occurrence: None)
  Receive Date: 20070529
  Receipt Date: 20070522
  Transmission Date: 20071010
  Serious: Yes (Hospitalization)
  Sender: FDA-Public Use
  Company Number: GBWYE442421FEB05

PATIENT
  Sex: Female
  Weight: 70 kg

DRUGS (11)
  1. NEORAL [Suspect]
     Indication: IMMUNOSUPPRESSION
     Dosage: 50 MG, FREQUENCY UNKNOWN
     Route: 048
     Dates: start: 19980613, end: 20050207
  2. MYCOPHENOLATE MOFETIL [Concomitant]
     Dosage: UNKNOWN
     Dates: end: 20050101
  3. TRAVOPROST [Concomitant]
     Indication: GLAUCOMA
     Dosage: UNKNOWN
     Route: 047
     Dates: start: 20041201
  4. GABAPENTIN [Concomitant]
     Indication: RESTLESS LEGS SYNDROME
     Route: 048
     Dates: start: 20040312
  5. ATENOLOL [Concomitant]
     Indication: HYPERTENSION
     Route: 048
     Dates: start: 20030709
  6. PRAVASTATIN [Concomitant]
     Indication: HYPERCHOLESTEROLAEMIA
     Route: 048
     Dates: start: 19991119
  7. OMEPRAZOLE [Concomitant]
     Indication: PROPHYLAXIS AGAINST GASTROINTESTINAL ULCER
     Route: 048
     Dates: start: 20000524
  8. ISOSORBIDE MONONITRATE [Concomitant]
     Indication: ANGINA PECTORIS
     Route: 048
     Dates: start: 20001101
  9. ISOSORBIDE MONONITRATE [Concomitant]
     Indication: LEFT VENTRICULAR FAILURE
  10. FUROSEMIDE [Concomitant]
     Indication: POLYURIA
     Dosage: 250 MG, FREQUENCY UNKNOWN
     Route: 048
  11. RAMIPRIL [Concomitant]
     Indication: HYPERTENSION
     Route: 048
     Dates: start: 20041203

REACTIONS (8)
  - BLOOD CALCIUM DECREASED [None]
  - CHRONIC ALLOGRAFT NEPHROPATHY [None]
  - DEHYDRATION [None]
  - DIARRHOEA [None]
  - HYPOKALAEMIA [None]
  - LOWER RESPIRATORY TRACT INFECTION [None]
  - SYNCOPE [None]
  - WHITE BLOOD CELL COUNT DECREASED [None]
